FAERS Safety Report 21669449 (Version 1)
Quarter: 2022Q4

REPORT INFORMATION
  Report Type: Spontaneous
  Country: US (occurrence: None)
  Receive Date: 20221201
  Receipt Date: 20221201
  Transmission Date: 20230113
  Serious: No
  Sender: FDA-Public Use
  Company Number: 2022A363447

PATIENT
  Sex: Male
  Weight: 88.6 kg

DRUGS (1)
  1. CALQUENCE [Suspect]
     Active Substance: ACALABRUTINIB
     Indication: Lymphocytic lymphoma
     Route: 048
     Dates: start: 202109

REACTIONS (2)
  - Oedema peripheral [Unknown]
  - Haemorrhage [Unknown]
